FAERS Safety Report 5326030-3 (Version None)
Quarter: 2007Q2

REPORT INFORMATION
  Report Type: 
  Country: None (occurrence: None)
  Receive Date: 20070516
  Receipt Date: 20070501
  Transmission Date: 20071010
  Serious: Yes (Disabling)
  Sender: FDA-Public Use
  Company Number: TR-SHR-TR-2007-015297

PATIENT
  Age: 59 Year
  Sex: Female

DRUGS (2)
  1. FLUDARA [Suspect]
     Dosage: 40 - 70MG/M2 X5DAYS/MONTH
     Route: 048
     Dates: start: 20061010, end: 20070301
  2. ALLOPURINOL [Concomitant]
     Dosage: 450MG
     Dates: start: 20061010, end: 20070301

REACTIONS (3)
  - BLINDNESS [None]
  - PARALYSIS [None]
  - TRIGEMINAL NEURALGIA [None]
